FAERS Safety Report 7796277-5 (Version None)
Quarter: 2011Q4

REPORT INFORMATION
  Report Type: 
  Country: None (occurrence: None)
  Receive Date: 20111004
  Receipt Date: 20110324
  Transmission Date: 20120403
  Serious: Yes (Hospitalization)
  Sender: FDA-Public Use
  Company Number: PHHY2011TW23012

PATIENT
  Sex: Female
  Weight: 54.4 kg

DRUGS (1)
  1. TASIGNA [Suspect]
     Indication: CHRONIC MYELOID LEUKAEMIA
     Dosage: 200 MG, BID
     Route: 048
     Dates: start: 20100612

REACTIONS (5)
  - PYREXIA [None]
  - PNEUMONIA [None]
  - DYSPNOEA [None]
  - PRODUCTIVE COUGH [None]
  - SPUTUM DISCOLOURED [None]
